FAERS Safety Report 4751282-8 (Version None)
Quarter: 2005Q3

REPORT INFORMATION
  Report Type: 
  Country: None (occurrence: None)
  Receive Date: 20050824
  Receipt Date: 20050816
  Transmission Date: 20060218
  Serious: Yes (Hospitalization)
  Sender: FDA-Public Use
  Company Number: 2005CG01387

PATIENT
  Age: 16362 Day
  Sex: Male
  Weight: 75 kg

DRUGS (6)
  1. MOPRAL [Suspect]
     Route: 048
     Dates: start: 20050610
  2. ATACAND [Suspect]
     Indication: HYPERTENSION
     Route: 048
     Dates: end: 20050609
  3. ATACAND [Suspect]
     Route: 048
     Dates: start: 20050610
  4. CORTANCYL [Suspect]
     Route: 048
     Dates: start: 20050610
  5. RIMIFON [Suspect]
     Route: 048
     Dates: start: 20050610
  6. ACTONEL [Suspect]
     Route: 048
     Dates: start: 20050610

REACTIONS (7)
  - ACTIVATED PARTIAL THROMBOPLASTIN TIME SHORTENED [None]
  - BEHCET'S SYNDROME [None]
  - CEREBRAL VENOUS THROMBOSIS [None]
  - CONVULSION [None]
  - POST PROCEDURAL COMPLICATION [None]
  - SARCOIDOSIS [None]
  - SUBDURAL HAEMATOMA [None]
